FAERS Safety Report 6246018-8 (Version None)
Quarter: 2009Q2

REPORT INFORMATION
  Report Type: 
  Country: None (occurrence: None)
  Receive Date: 20090626
  Receipt Date: 20081107
  Transmission Date: 20091009
  Serious: Yes (Hospitalization)
  Sender: FDA-Public Use
  Company Number: A0755609A

PATIENT
  Age: 49 Year
  Sex: Female

DRUGS (12)
  1. IMITREX [Suspect]
     Indication: MIGRAINE
     Dosage: 100MG AS REQUIRED
     Route: 048
     Dates: start: 19950101
  2. IMITREX [Suspect]
     Dosage: 6MG AS REQUIRED
     Route: 058
  3. IMITREX [Suspect]
  4. LYRICA [Concomitant]
  5. LEVOTHYROXINE SODIUM [Concomitant]
  6. GLIPIZIDE [Concomitant]
  7. CATAPRES [Concomitant]
  8. LOVASTATIN [Concomitant]
  9. METHADONE [Concomitant]
  10. CYMBALTA [Concomitant]
  11. M.V.I. [Concomitant]
  12. GEMFIBROZIL [Concomitant]

REACTIONS (2)
  - DRUG INEFFECTIVE [None]
  - MIGRAINE [None]
